FAERS Safety Report 24730162 (Version 1)
Quarter: 2024Q4

REPORT INFORMATION
  Report Type: Spontaneous
  Country: PL (occurrence: PL)
  Receive Date: 20241213
  Receipt Date: 20241213
  Transmission Date: 20250115
  Serious: Yes (Other)
  Sender: MERCK KGAA
  Company Number: PL-Merck Healthcare KGaA-2024064466

PATIENT
  Age: 73 Year
  Sex: Female
  Weight: 96 kg

DRUGS (4)
  1. TEPOTINIB [Suspect]
     Active Substance: TEPOTINIB
     Indication: Lung adenocarcinoma stage IV
     Dates: start: 20240215
  2. EUTHYROX [Suspect]
     Active Substance: LEVOTHYROXINE SODIUM
     Indication: Supplementation therapy
     Route: 048
     Dates: start: 2010
  3. BISOPROLOL [Suspect]
     Active Substance: BISOPROLOL
     Indication: Sinus tachycardia
  4. SALICYLIC ACID [Suspect]
     Active Substance: SALICYLIC ACID
     Indication: Coronary artery disease

REACTIONS (10)
  - Oedema peripheral [Recovering/Resolving]
  - Cough [Recovered/Resolved]
  - Chest pain [Recovered/Resolved]
  - Spider vein [Not Recovered/Not Resolved]
  - Dry skin [Not Recovered/Not Resolved]
  - Blood creatinine increased [Unknown]
  - Hypoalbuminaemia [Unknown]
  - Alopecia [Not Recovered/Not Resolved]
  - Erythema [Not Recovered/Not Resolved]
  - Rash papular [Not Recovered/Not Resolved]
